FAERS Safety Report 5564316-8 (Version None)
Quarter: 2007Q4

REPORT INFORMATION
  Report Type: 
  Country: None (occurrence: None)
  Receive Date: 20071218
  Receipt Date: 20071210
  Transmission Date: 20080405
  Serious: Yes (Other)
  Sender: FDA-Public Use
  Company Number: PHEH2007US15708

PATIENT
  Age: 72 Year
  Sex: Male

DRUGS (4)
  1. ZOMETA [Suspect]
     Indication: METASTASES TO BONE
     Dosage: 4 MG, Q2MO
     Dates: start: 20050410, end: 20070420
  2. ZOMETA [Suspect]
     Dosage: 3 MG, EVERY MONTH
     Dates: start: 20070401
  3. LUPRON [Concomitant]
     Dosage: EVERY 4 MONTHS
  4. PROCRIT [Concomitant]

REACTIONS (1)
  - OSTEONECROSIS [None]
